FAERS Safety Report 8236635-8 (Version None)
Quarter: 2012Q1

REPORT INFORMATION
  Report Type: 
  Country: None (occurrence: None)
  Receive Date: 20120326
  Receipt Date: 20120326
  Transmission Date: 20120608
  Serious: No
  Sender: FDA-Public Use
  Company Number: None

PATIENT

DRUGS (1)
  1. ATELVIA [Suspect]

REACTIONS (3)
  - GASTRIC DISORDER [None]
  - ARTHRALGIA [None]
  - DYSPNOEA [None]
